FAERS Safety Report 5774994-6 (Version None)
Quarter: 2008Q2

REPORT INFORMATION
  Report Type: 
  Country: None (occurrence: None)
  Receive Date: 20080617
  Receipt Date: 20080613
  Transmission Date: 20081010
  Serious: Yes (Death, Hospitalization, Other)
  Sender: FDA-Public Use
  Company Number: PHNU2008DE01354

PATIENT
  Sex: Male

DRUGS (3)
  1. FLUVASTATIN [Suspect]
     Dosage: 20 MG, QD
     Route: 048
     Dates: start: 20071001
  2. CYCLOSPORINE [Suspect]
     Indication: HEART TRANSPLANT
     Dates: start: 19870601
  3. ZOCOR [Concomitant]
     Dates: start: 19910101, end: 20071001

REACTIONS (7)
  - DEATH [None]
  - DIALYSIS [None]
  - DYSPHAGIA [None]
  - LUNG NEOPLASM MALIGNANT [None]
  - MUSCULAR WEAKNESS [None]
  - MYALGIA [None]
  - OESOPHAGEAL HYPOMOTILITY [None]
